FAERS Safety Report 9901931 (Version 2)
Quarter: 2014Q2

REPORT INFORMATION
  Report Type: Spontaneous
  Country: ES (occurrence: ES)
  Receive Date: 20140217
  Receipt Date: 20140624
  Transmission Date: 20141212
  Serious: Yes (Other)
  Sender: FDA-Public Use
  Company Number: ES-GLAXOSMITHKLINE-B0969936A

PATIENT
  Age: 60 Year
  Sex: Male

DRUGS (1)
  1. DUODART [Suspect]
     Indication: BENIGN PROSTATIC HYPERPLASIA
     Dosage: 1CAP PER DAY
     Route: 048
     Dates: start: 201309

REACTIONS (3)
  - Vitreous detachment [Recovered/Resolved]
  - Condition aggravated [Recovered/Resolved]
  - Blindness transient [Unknown]
